FAERS Safety Report 21702746 (Version 3)
Quarter: 2023Q1

REPORT INFORMATION
  Report Type: Spontaneous
  Country: US (occurrence: US)
  Receive Date: 20221209
  Receipt Date: 20230109
  Transmission Date: 20230417
  Serious: No
  Sender: FDA-Public Use
  Company Number: US-BRISTOL-MYERS SQUIBB COMPANY-2022-150222

PATIENT
  Age: 69 Year
  Sex: Male
  Weight: 84.82 kg

DRUGS (1)
  1. REVLIMID [Suspect]
     Active Substance: LENALIDOMIDE
     Indication: Chronic lymphocytic leukaemia
     Dosage: FREQ: DAILY DAYS 1-21, EVERY 28 DAYS
     Route: 048
     Dates: start: 20221214

REACTIONS (3)
  - Off label use [Unknown]
  - White blood cell count decreased [Unknown]
  - Red blood cell count decreased [Recovered/Resolved]

NARRATIVE: CASE EVENT DATE: 20221219
